FAERS Safety Report 8956428 (Version 2)
Quarter: 2013Q2

REPORT INFORMATION
  Report Type: Spontaneous
  Country: FR (occurrence: FR)
  Receive Date: 20121210
  Receipt Date: 20130408
  Transmission Date: 20140414
  Serious: No
  Sender: FDA-Public Use
  Company Number: FR-ASTRAZENECA-2012SE91258

PATIENT
  Age: 18885 Day
  Sex: Male
  Weight: 78 kg

DRUGS (8)
  1. CRESTOR [Suspect]
     Indication: HYPERCHOLESTEROLAEMIA
     Route: 048
     Dates: start: 20081031, end: 20121101
  2. CRESTOR [Suspect]
     Indication: HYPERCHOLESTEROLAEMIA
     Route: 048
  3. FLUCONAZOLE [Suspect]
     Indication: FUNGAL INFECTION
     Route: 065
     Dates: start: 20121031
  4. AUGMENTIN [Concomitant]
  5. CELESTENE [Concomitant]
  6. RHINOFLUIMUCIL [Concomitant]
  7. ORELOX [Concomitant]
     Indication: BRONCHITIS
     Dates: start: 20121031
  8. BECOTIDE [Concomitant]
     Indication: BRONCHITIS
     Dates: start: 20121031

REACTIONS (1)
  - Gamma-glutamyltransferase increased [Recovered/Resolved]
